FAERS Safety Report 15607376 (Version 16)
Quarter: 2020Q2

REPORT INFORMATION
  Report Type: Report from Study
  Country: None (occurrence: IL)
  Receive Date: 20181112
  Receipt Date: 20200513
  Transmission Date: 20200713
  Serious: Yes (Hospitalization, Other)
  Sender: FDA-Public Use
  Company Number: IL-ABBVIE-18S-082-2544942-00

PATIENT
  Age: 65 Year
  Sex: Male

DRUGS (7)
  1. DUODOPA [Suspect]
     Active Substance: CARBIDOPA\LEVODOPA
     Dosage: MD 8ML,CD 3.8ML/HOUR,ND2.3ML/HOUR,ED 1.5ML
     Route: 050
     Dates: start: 2018
  2. DUODOPA [Suspect]
     Active Substance: CARBIDOPA\LEVODOPA
     Indication: PARKINSON^S DISEASE
     Dosage: CMD- 13 ML, CFR- 3.8 ML/ HOUR, CND 2.3 ML, CED-1.5ML
     Route: 050
     Dates: start: 20180702, end: 2018
  3. DUODOPA [Suspect]
     Active Substance: CARBIDOPA\LEVODOPA
     Dosage: DOSE INCREASED
     Route: 050
  4. DUODOPA [Suspect]
     Active Substance: CARBIDOPA\LEVODOPA
     Dosage: MD 3ML,CD 4ML/HOUR,ND3.5ML/HOUR, ED 2ML
     Route: 050
  5. DUODOPA [Suspect]
     Active Substance: CARBIDOPA\LEVODOPA
     Dosage: CURRENT: MD 13, CD 3.8,ND 2.3, ED1.5.
     Route: 050
     Dates: start: 2018, end: 2018
  6. DUODOPA [Suspect]
     Active Substance: CARBIDOPA\LEVODOPA
     Dosage: MD 5ML,CD 3.8ML/HOUR,ND2.3ML/HOUR,ED 1.5ML
     Route: 050
  7. DUODOPA [Suspect]
     Active Substance: CARBIDOPA\LEVODOPA
     Dosage: DOSE DECREASE, MD 3ML,CD 4ML/HOUR,ND3.5ML/HOUR, ED 2ML
     Route: 050

REACTIONS (21)
  - Dyskinesia [Not Recovered/Not Resolved]
  - Volvulus [Unknown]
  - Mass [Unknown]
  - Altered state of consciousness [Recovering/Resolving]
  - Metastases to liver [Unknown]
  - Diarrhoea [Unknown]
  - Pain in extremity [Unknown]
  - Post procedural infection [Unknown]
  - Cerebral haemorrhage [Unknown]
  - Abdominal pain [Unknown]
  - Foot operation [Recovered/Resolved]
  - Condition aggravated [Recovering/Resolving]
  - Dyskinesia [Recovered/Resolved]
  - On and off phenomenon [Recovered/Resolved]
  - On and off phenomenon [Unknown]
  - Foot deformity [Recovered/Resolved]
  - Intestinal obstruction [Unknown]
  - Intentional product misuse [Unknown]
  - Infection [Unknown]
  - Constipation [Recovered/Resolved]
  - On and off phenomenon [Not Recovered/Not Resolved]

NARRATIVE: CASE EVENT DATE: 2018
